FAERS Safety Report 4304250-4 (Version None)
Quarter: 2004Q1

REPORT INFORMATION
  Report Type: 
  Country: None (occurrence: None)
  Receive Date: 20040225
  Receipt Date: 20040213
  Transmission Date: 20041129
  Serious: Yes (Hospitalization)
  Sender: FDA-Public Use
  Company Number: WAES 0402AUS00113

PATIENT
  Age: 70 Year
  Sex: Male

DRUGS (8)
  1. ACETAMINOPHEN AND PROPOXYPHENE HYDROCHLORIDE [Concomitant]
  2. ASPIRIN [Concomitant]
  3. FERROUS SULFATE AND FOLIC ACID [Concomitant]
  4. GEMFIBROZIL [Suspect]
     Route: 048
  5. OMEPRAZOLE [Concomitant]
  6. ZOCOR [Suspect]
     Route: 048
  7. TEMAZEPAM [Concomitant]
  8. VITAMINS (UNSPECIFIED) [Concomitant]

REACTIONS (6)
  - ANOREXIA [None]
  - ASTHENIA [None]
  - BLOOD CREATINE PHOSPHOKINASE INCREASED [None]
  - DEPRESSION [None]
  - FATIGUE [None]
  - WEIGHT DECREASED [None]
